FAERS Safety Report 4315281-2 (Version None)
Quarter: 2004Q1

REPORT INFORMATION
  Report Type: 
  Country: None (occurrence: None)
  Receive Date: 20040309
  Receipt Date: 20040220
  Transmission Date: 20041129
  Serious: No
  Sender: FDA-Public Use
  Company Number: 04P-107-0251061

PATIENT
  Age: 53 Year
  Sex: Female
  Weight: 79 kg

DRUGS (3)
  1. HUMIRA [Suspect]
     Indication: RHEUMATOID ARTHRITIS
     Dosage: 40 MG, 1 IN 15 D, SUBCUTANEOUS
     Route: 058
     Dates: start: 20031217
  2. METHOTREXATE [Concomitant]
  3. INDOMETHACIN [Concomitant]

REACTIONS (3)
  - GALACTORRHOEA [None]
  - HYPERPROLACTINAEMIA [None]
  - PITUITARY TUMOUR BENIGN [None]
